FAERS Safety Report 7102872-9 (Version None)
Quarter: 2010Q4

REPORT INFORMATION
  Report Type: 
  Country: None (occurrence: None)
  Receive Date: 20101115
  Receipt Date: 20101102
  Transmission Date: 20110411
  Serious: Yes (Hospitalization)
  Sender: FDA-Public Use
  Company Number: US-ELI_LILLY_AND_COMPANY-US201008000949

PATIENT
  Sex: Male

DRUGS (11)
  1. FORTEO [Suspect]
     Indication: BONE DISORDER
     Dosage: 20 UG, DAILY (1/D)
  2. FORTEO [Suspect]
     Dosage: 20 UG, DAILY (1/D)
  3. ANTIHYPERTENSIVE AGENT [Concomitant]
  4. CARDIZEM [Concomitant]
  5. DIOVAN [Concomitant]
  6. FLOMAX [Concomitant]
  7. CRESTOR [Concomitant]
     Indication: BLOOD CHOLESTEROL
  8. VITAMIN D [Concomitant]
     Dosage: UNK, OTHER
  9. CLARINEX [Concomitant]
  10. BUMEX [Concomitant]
  11. KLOR-CON [Concomitant]

REACTIONS (4)
  - BONE DISORDER [None]
  - KNEE ARTHROPLASTY [None]
  - ONYCHOCLASIS [None]
  - POSTOPERATIVE WOUND INFECTION [None]
